FAERS Safety Report 10962344 (Version 1)
Quarter: 2015Q1

REPORT INFORMATION
  Report Type: Spontaneous
  Country: US (occurrence: US)
  Receive Date: 20150327
  Receipt Date: 20150327
  Transmission Date: 20150721
  Serious: Yes (Other)
  Sender: FDA-Public Use
  Company Number: US-BAYER-2015-062019

PATIENT
  Age: 71 Year
  Sex: Male
  Weight: 94 kg

DRUGS (5)
  1. TRACLEER [Concomitant]
     Active Substance: BOSENTAN\BOSENTAN MONOHYDRATE
  2. BAYER GENUINE ASPIRIN [Suspect]
     Active Substance: ASPIRIN
     Indication: PRODUCT USED FOR UNKNOWN INDICATION
     Dosage: UNK
     Dates: end: 20150107
  3. TYVASO [Suspect]
     Active Substance: TREPROSTINIL
     Indication: PULMONARY HYPERTENSION
     Dosage: UNK
  4. REVATIO [Concomitant]
     Active Substance: SILDENAFIL CITRATE
  5. TYVASO [Suspect]
     Active Substance: TREPROSTINIL
     Indication: PULMONARY HYPERTENSION
     Dosage: 18-54MCG, QID
     Route: 045
     Dates: start: 20141021, end: 20150107

REACTIONS (5)
  - Productive cough [Unknown]
  - Diarrhoea [Unknown]
  - Urinary bladder haemorrhage [Unknown]
  - Blood urine present [Unknown]
  - Bladder disorder [Unknown]

NARRATIVE: CASE EVENT DATE: 201412
